FAERS Safety Report 22998281 (Version 2)
Quarter: 2023Q4

REPORT INFORMATION
  Report Type: Spontaneous
  Country: US (occurrence: US)
  Receive Date: 20230928
  Receipt Date: 20231011
  Transmission Date: 20240110
  Serious: Yes (Hospitalization)
  Sender: FDA-Public Use
  Company Number: US-SAREPTA THERAPEUTICS INC.-SRP2023-003802

PATIENT
  Age: 7 Year
  Sex: Male
  Weight: 23.04 kg

DRUGS (6)
  1. EXONDYS 51 [Suspect]
     Active Substance: ETEPLIRSEN
     Indication: Duchenne muscular dystrophy
     Dosage: UNK, WEEKLY
     Route: 042
     Dates: start: 20171004
  2. EXONDYS 51 [Suspect]
     Active Substance: ETEPLIRSEN
     Dosage: 600 MILLIGRAM WEEKLY
     Route: 042
     Dates: start: 20191004
  3. MULTIVITAMINS + IRON [Concomitant]
     Indication: Product used for unknown indication
     Dosage: UNK UNK, QD
     Route: 048
  4. VITAMIN D2 [Concomitant]
     Active Substance: ERGOCALCIFEROL
     Indication: Product used for unknown indication
     Dosage: 500 MILLIGRAM, QD
     Route: 048
  5. EMFLAZA [Concomitant]
     Active Substance: DEFLAZACORT
     Indication: Product used for unknown indication
     Dosage: 18 MILLIGRAM, QD
     Route: 048
     Dates: start: 20201019, end: 20211229
  6. EMFLAZA [Concomitant]
     Active Substance: DEFLAZACORT
     Dosage: 0.7 MILLILITER, QD
     Route: 048

REACTIONS (3)
  - Appendicitis [Recovering/Resolving]
  - Cholecystitis [Recovering/Resolving]
  - Pyrexia [Unknown]

NARRATIVE: CASE EVENT DATE: 20201025
